FAERS Safety Report 7497566-4 (Version None)
Quarter: 2011Q2

REPORT INFORMATION
  Report Type: 
  Country: None (occurrence: None)
  Receive Date: 20110523
  Receipt Date: 20110512
  Transmission Date: 20111010
  Serious: Yes (Death)
  Sender: FDA-Public Use
  Company Number: US-CELGENEUS-163-21880-11043782

PATIENT
  Sex: Female

DRUGS (14)
  1. DIOVAN [Concomitant]
     Route: 048
     Dates: end: 20101202
  2. ASPIRIN [Concomitant]
     Route: 048
     Dates: end: 20101202
  3. LORTAB [Concomitant]
     Dosage: 5 MILLIGRAM
     Route: 048
     Dates: start: 20101202
  4. DEXAMETHASONE [Concomitant]
     Dosage: 4 MILLIGRAM
     Route: 048
     Dates: end: 20101202
  5. THEOPHYLLINE [Concomitant]
     Dosage: 100 MILLIGRAM
     Route: 048
  6. TRICOR [Concomitant]
     Dosage: 145 MILLIGRAM
     Route: 048
     Dates: end: 20101202
  7. REVLIMID [Suspect]
     Indication: MULTIPLE MYELOMA
     Dosage: 25 MILLIGRAM
     Route: 048
     Dates: start: 20100714, end: 20101202
  8. ACTOS [Concomitant]
     Dosage: 15-30MG
     Route: 048
  9. NORVASC [Concomitant]
     Dosage: 5 MILLIGRAM
     Route: 048
  10. ZOCOR [Concomitant]
     Dosage: 40 MILLIGRAM
     Route: 048
     Dates: end: 20101202
  11. DARVOCET [Concomitant]
     Dosage: 100 MILLIGRAM
     Route: 048
     Dates: start: 20101202
  12. ALBUTEROL SULFATE AUTOHALER [Concomitant]
     Dosage: 90 MICROGRAM
     Route: 055
  13. PREDNISONE [Concomitant]
     Dosage: 10 MILLIGRAM
     Route: 048
  14. NEXIUM [Concomitant]
     Dosage: 40 MILLIGRAM
     Route: 048

REACTIONS (1)
  - NON-SMALL CELL LUNG CANCER [None]
